FAERS Safety Report 20264025 (Version 1)
Quarter: 2021Q4

REPORT INFORMATION
  Report Type: Spontaneous
  Country: CA (occurrence: CA)
  Receive Date: 20211231
  Receipt Date: 20211231
  Transmission Date: 20220304
  Serious: Yes (Other)
  Sender: FDA-Public Use
  Company Number: None

PATIENT
  Age: 78 Year
  Sex: Female

DRUGS (4)
  1. METHOTREXATE [Suspect]
     Active Substance: METHOTREXATE
     Indication: Product used for unknown indication
     Dosage: FREQUENCY 1 EVERY 1 WEEKS
     Route: 058
  2. RIOCIGUAT [Concomitant]
     Active Substance: RIOCIGUAT
     Dosage: FREQUENCY 3 EVERY 1 DAYS
     Route: 065
  3. FOLIC ACID [Concomitant]
     Active Substance: FOLIC ACID
     Route: 065
  4. SYNTHROID [Concomitant]
     Active Substance: LEVOTHYROXINE SODIUM
     Indication: Rheumatoid arthritis

REACTIONS (3)
  - Cataract [Unknown]
  - Product use issue [Unknown]
  - Wrist fracture [Unknown]
